FAERS Safety Report 25769957 (Version 1)
Quarter: 2025Q3

REPORT INFORMATION
  Report Type: Spontaneous
  Country: EU (occurrence: EU)
  Receive Date: 20250907
  Receipt Date: 20250907
  Transmission Date: 20251020
  Serious: Yes (Other)
  Sender: TEVA
  Company Number: None

PATIENT
  Age: 77 Year
  Sex: Female

DRUGS (6)
  1. METHOTREXATE [Suspect]
     Active Substance: METHOTREXATE
     Indication: Eczema
     Dosage: 1 TIME PER WEEK 4 TABLETS OF 2.5MG: BRAND NAME NOT SPECIFIED
     Route: 048
     Dates: start: 20250730, end: 20250730
  2. ELIQUIS [Concomitant]
     Active Substance: APIXABAN
     Indication: Product used for unknown indication
     Route: 048
  3. SOTALOL [Concomitant]
     Active Substance: SOTALOL
     Indication: Product used for unknown indication
     Route: 048
  4. EUTHYROX [Concomitant]
     Active Substance: LEVOTHYROXINE SODIUM
     Indication: Product used for unknown indication
     Route: 048
  5. ECZORIA [Concomitant]
     Indication: Product used for unknown indication
     Route: 003
  6. DURATEARS FREE [Concomitant]
     Indication: Product used for unknown indication
     Route: 065

REACTIONS (1)
  - Arrhythmia [Not Recovered/Not Resolved]
